FAERS Safety Report 9298743 (Version 2)
Quarter: 2013Q3

REPORT INFORMATION
  Report Type: Spontaneous
  Country: US (occurrence: US)
  Receive Date: 20130520
  Receipt Date: 20130723
  Transmission Date: 20140515
  Serious: Yes (Other)
  Sender: FDA-Public Use
  Company Number: US-GLAXOSMITHKLINE-A1023066A

PATIENT
  Age: 25 Year
  Sex: Female

DRUGS (6)
  1. POTIGA [Suspect]
     Indication: EPILEPSY
     Dosage: 200MG THREE TIMES PER DAY
     Route: 048
     Dates: start: 201301, end: 201306
  2. ONFI [Concomitant]
  3. VIMPAT [Concomitant]
  4. DIAZEPAM [Concomitant]
  5. TRAZODONE [Concomitant]
  6. NEXIUM [Concomitant]

REACTIONS (4)
  - Chorea [Not Recovered/Not Resolved]
  - Compulsive lip biting [Unknown]
  - Restless legs syndrome [Unknown]
  - Movement disorder [Unknown]
